FAERS Safety Report 6410425-0 (Version None)
Quarter: 2009Q4

REPORT INFORMATION
  Report Type: 
  Country: None (occurrence: None)
  Receive Date: 20091022
  Receipt Date: 20091016
  Transmission Date: 20100525
  Serious: No
  Sender: FDA-Public Use
  Company Number: US-B.I. PHARMACEUTICALS,INC./RIDGEFIELD-2009-BP-12147BP

PATIENT
  Sex: Female

DRUGS (10)
  1. SPIRIVA [Suspect]
     Indication: CHRONIC OBSTRUCTIVE PULMONARY DISEASE
     Dosage: 18 MCG
     Route: 055
     Dates: start: 20090801
  2. ACIPHEX [Concomitant]
     Indication: OESOPHAGEAL SPASM
  3. SYNTHROID [Concomitant]
     Indication: HYPOTHYROIDISM
  4. LUTEIN [Concomitant]
     Indication: PROPHYLAXIS
  5. VITAMINS [Concomitant]
     Indication: PROPHYLAXIS
  6. ZOLOFT [Concomitant]
     Indication: DEPRESSION
  7. ADVAIR DISKUS 100/50 [Concomitant]
     Indication: CHRONIC OBSTRUCTIVE PULMONARY DISEASE
  8. FLONASE [Concomitant]
     Indication: OESOPHAGEAL SPASM
  9. XALATAN [Concomitant]
     Indication: GLAUCOMA
  10. ZETIA [Concomitant]
     Indication: BLOOD CHOLESTEROL INCREASED

REACTIONS (1)
  - DYSPHONIA [None]
